FAERS Safety Report 13739168 (Version 1)
Quarter: 2017Q3

REPORT INFORMATION
  Report Type: Spontaneous
  Country: US (occurrence: US)
  Receive Date: 20170710
  Receipt Date: 20170710
  Transmission Date: 20171127
  Serious: Yes (Hospitalization, Other)
  Sender: FDA-Public Use
  Company Number: US-SAOL THERAPEUTICS-2017SAO00559

PATIENT
  Age: 16 Year
  Sex: Male
  Weight: 60 kg

DRUGS (4)
  1. BACLOFEN. [Suspect]
     Active Substance: BACLOFEN
     Indication: QUADRIPLEGIA
     Dosage: 1099 ?G, \DAY
     Route: 037
     Dates: start: 2008
  2. BACLOFEN. [Suspect]
     Active Substance: BACLOFEN
     Dosage: 1209 ?G, \DAY
     Route: 037
  3. SINEMET [Concomitant]
     Active Substance: CARBIDOPA\LEVODOPA
     Dosage: UNK, 2X/DAY
  4. BACLOFEN. [Suspect]
     Active Substance: BACLOFEN
     Dosage: 855.9 ?G, \DAY

REACTIONS (5)
  - Hypertonia [Recovered/Resolved]
  - Pruritus [Recovered/Resolved]
  - Sedation [Recovered/Resolved]
  - Muscle spasms [Recovered/Resolved]
  - Complication associated with device [Recovered/Resolved]

NARRATIVE: CASE EVENT DATE: 20170314
